FAERS Safety Report 5871377-5 (Version None)
Quarter: 2008Q3

REPORT INFORMATION
  Report Type: 
  Country: None (occurrence: None)
  Receive Date: 20080905
  Receipt Date: 20080903
  Transmission Date: 20090109
  Serious: Yes (Other)
  Sender: FDA-Public Use
  Company Number: US-BOEHRINGER INGELHEIM GMBH, GERMANY-2008-BP-13665BP

PATIENT
  Age: 68 Year
  Sex: Female

DRUGS (12)
  1. MOBIC [Suspect]
     Indication: PAIN
     Dates: start: 20070531, end: 20070918
  2. MOBIC [Suspect]
     Indication: OSTEOARTHRITIS
  3. TRICOR [Concomitant]
  4. CLARITIN [Concomitant]
  5. SYNTHROID [Concomitant]
  6. TOPROL-XL [Concomitant]
  7. VALIUM [Concomitant]
  8. TYLENOL (CAPLET) [Concomitant]
  9. ZANTAC [Concomitant]
  10. ALLEGRA [Concomitant]
  11. LISINOPRIL [Concomitant]
  12. CLARINEX [Concomitant]

REACTIONS (1)
  - ANAEMIA HAEMOLYTIC AUTOIMMUNE [None]
